FAERS Safety Report 25766050 (Version 1)
Quarter: 2025Q3

REPORT INFORMATION
  Report Type: Spontaneous
  Country: US (occurrence: US)
  Receive Date: 20250905
  Receipt Date: 20250905
  Transmission Date: 20251020
  Serious: No
  Sender: DOMPE FARMACEUTICI
  Company Number: US-FARMAPROD-202407-2774

PATIENT
  Age: 78 Year
  Sex: Female

DRUGS (11)
  1. OXERVATE [Suspect]
     Active Substance: CENEGERMIN-BKBJ
     Indication: Neurotrophic keratopathy
     Route: 047
     Dates: start: 20240716
  2. OXERVATE [Suspect]
     Active Substance: CENEGERMIN-BKBJ
  3. OXERVATE [Suspect]
     Active Substance: CENEGERMIN-BKBJ
  4. MAGNESIUM [Concomitant]
     Active Substance: MAGNESIUM
  5. HERBALS\TURMERIC [Concomitant]
     Active Substance: HERBALS\TURMERIC
  6. PROBIOTICS NOS [Concomitant]
     Active Substance: PROBIOTICS NOS
  7. MULTIVITAMIN WOMEN 50 PLUS [Concomitant]
  8. COLLAGEN [Concomitant]
     Active Substance: COLLAGEN
  9. SCIATIC E [Concomitant]
  10. NOCEPTIN [Concomitant]
  11. OASIS TEARS [Concomitant]
     Active Substance: GLYCERIN

REACTIONS (6)
  - Inappropriate schedule of product administration [Unknown]
  - Ocular discomfort [Unknown]
  - Eye pain [Unknown]
  - Ocular discomfort [Not Recovered/Not Resolved]
  - Wrong technique in product usage process [Unknown]
  - Product administration error [Unknown]

NARRATIVE: CASE EVENT DATE: 20240729
